FAERS Safety Report 16408851 (Version 1)
Quarter: 2019Q2

REPORT INFORMATION
  Report Type: Spontaneous
  Country: US (occurrence: US)
  Receive Date: 20190610
  Receipt Date: 20190610
  Transmission Date: 20190711
  Serious: No
  Sender: FDA-Public Use
  Company Number: US-CELGENEUS-USA-20190600247

PATIENT
  Age: 59 Year
  Sex: Female
  Weight: 83.54 kg

DRUGS (8)
  1. THALOMID [Suspect]
     Active Substance: THALIDOMIDE
     Indication: PLASMA CELL MYELOMA
     Dosage: 400 MILLIGRAM
     Route: 048
     Dates: start: 200301
  2. THALOMID [Suspect]
     Active Substance: THALIDOMIDE
     Dosage: 400 MILLIGRAM
     Route: 048
     Dates: start: 20091223
  3. THALOMID [Suspect]
     Active Substance: THALIDOMIDE
     Dosage: 200 MILLIGRAM
     Route: 048
     Dates: start: 201706
  4. THALOMID [Suspect]
     Active Substance: THALIDOMIDE
     Dosage: 200-400 MILLIGRAM
     Route: 048
     Dates: start: 200802
  5. THALOMID [Suspect]
     Active Substance: THALIDOMIDE
     Dosage: 800-400 MILLIGRAM
     Route: 048
     Dates: start: 201401
  6. THALOMID [Suspect]
     Active Substance: THALIDOMIDE
     Dosage: 200-400 MILLIGRAM
     Route: 048
     Dates: start: 201410
  7. GABAPENTIN. [Concomitant]
     Active Substance: GABAPENTIN
     Indication: PRODUCT USED FOR UNKNOWN INDICATION
     Route: 065
  8. TRESIBA [Concomitant]
     Active Substance: INSULIN DEGLUDEC
     Indication: PRODUCT USED FOR UNKNOWN INDICATION
     Route: 065

REACTIONS (3)
  - Product dose omission [Unknown]
  - Oropharyngeal pain [Recovered/Resolved]
  - Cough [Recovered/Resolved]

NARRATIVE: CASE EVENT DATE: 201905
